FAERS Safety Report 5943227-X (Version None)
Quarter: 2008Q4

REPORT INFORMATION
  Report Type: 
  Country: None (occurrence: None)
  Receive Date: 20081106
  Receipt Date: 20081031
  Transmission Date: 20090506
  Serious: Yes (Other)
  Sender: FDA-Public Use
  Company Number: B0545038A

PATIENT
  Age: 31 Year
  Sex: Male

DRUGS (2)
  1. ZINACEF [Suspect]
     Indication: PNEUMONIA
     Route: 042
     Dates: start: 20080213, end: 20080215
  2. AVELOX [Suspect]
     Indication: PNEUMONIA
     Route: 048
     Dates: start: 20080215, end: 20080228

REACTIONS (1)
  - TENDON RUPTURE [None]
